FAERS Safety Report 11822338 (Version 2)
Quarter: 2016Q1

REPORT INFORMATION
  Report Type: Spontaneous
  Country: US (occurrence: US)
  Receive Date: 20151210
  Receipt Date: 20160202
  Transmission Date: 20160525
  Serious: No
  Sender: FDA-Public Use
  Company Number: US-JNJFOC-20150614917

PATIENT
  Age: 66 Year
  Sex: Male

DRUGS (1)
  1. IMBRUVICA [Suspect]
     Active Substance: IBRUTINIB
     Indication: WALDENSTROM^S MACROGLOBULINAEMIA
     Route: 048
     Dates: start: 20150509

REACTIONS (9)
  - Diarrhoea [Not Recovered/Not Resolved]
  - Rash [Unknown]
  - Dizziness [Recovered/Resolved]
  - Tooth extraction [Unknown]
  - Contusion [Unknown]
  - Haemorrhage [Unknown]
  - Night sweats [Unknown]
  - Constipation [Recovered/Resolved]
  - Mass [Unknown]

NARRATIVE: CASE EVENT DATE: 2015
